FAERS Safety Report 21091841 (Version 1)
Quarter: 2022Q3

REPORT INFORMATION
  Report Type: Spontaneous
  Country: US (occurrence: US)
  Receive Date: 20220717
  Receipt Date: 20220717
  Transmission Date: 20221026
  Serious: Yes (Life-Threatening, Hospitalization)
  Sender: FDA-Public Use
  Company Number: US-LP PHARMA-2022PRN00243

PATIENT
  Age: 28 Year
  Sex: Female

DRUGS (2)
  1. CLONIDINE HYDROCHLORIDE [Suspect]
     Active Substance: CLONIDINE HYDROCHLORIDE
     Dosage: UNKNOWN; ^PILLS^
     Route: 065
  2. CLONIDINE HYDROCHLORIDE [Suspect]
     Active Substance: CLONIDINE HYDROCHLORIDE
     Dosage: 30 PILLS
     Route: 048

REACTIONS (4)
  - Overdose [Recovered/Resolved]
  - Suicide attempt [Recovered/Resolved]
  - Myocardial infarction [Recovered/Resolved]
  - Cardiac failure [Recovered/Resolved]
